FAERS Safety Report 7419895-2 (Version None)
Quarter: 2011Q2

REPORT INFORMATION
  Report Type: 
  Country: None (occurrence: None)
  Receive Date: 20110418
  Receipt Date: 20110330
  Transmission Date: 20111010
  Serious: Yes (Other)
  Sender: FDA-Public Use
  Company Number: US-BAYER-200934334NA

PATIENT
  Age: 57 Year
  Sex: Female

DRUGS (15)
  1. ASPIRIN [Concomitant]
  2. TRASYLOL [Suspect]
     Indication: CORONARY ARTERY BYPASS
     Dosage: 400CC, LOADING DOSE
     Route: 042
     Dates: start: 20050901, end: 20050901
  3. ATENOLOL [Concomitant]
  4. LIDOCAINE [Concomitant]
     Dosage: UNK
     Route: 042
     Dates: start: 20050901
  5. NITROGLYCERIN [Concomitant]
  6. ISORBIDE [Concomitant]
  7. CRESTOR [Concomitant]
  8. LEVOXYL [Concomitant]
  9. HYZAAR [Concomitant]
  10. RED BLOOD CELLS [Concomitant]
     Dosage: 750CC
     Route: 042
     Dates: start: 20050901, end: 20050901
  11. LISINOPRIL [Concomitant]
  12. PLASMALYTE [GLUCOSE,POTASSIUM CHLORIDE] [Concomitant]
     Dosage: UNK
     Route: 042
     Dates: start: 20050901, end: 20050901
  13. TRASYLOL [Suspect]
     Dosage: 50CC/HR
     Route: 042
     Dates: start: 20050901, end: 20050901
  14. LEVOTHYROXINE SODIUM [Concomitant]
  15. MIDAZOLAM [Concomitant]
     Dosage: UNK
     Route: 042
     Dates: start: 20050901

REACTIONS (13)
  - RENAL INJURY [None]
  - UNEVALUABLE EVENT [None]
  - MULTI-ORGAN FAILURE [None]
  - FEAR [None]
  - INTESTINAL OBSTRUCTION [None]
  - EMOTIONAL DISTRESS [None]
  - ANHEDONIA [None]
  - ANXIETY [None]
  - PAIN [None]
  - NERVOUSNESS [None]
  - RENAL FAILURE [None]
  - INJURY [None]
  - DEPRESSION [None]
